FAERS Safety Report 7428361-X (Version None)
Quarter: 2011Q2

REPORT INFORMATION
  Report Type: 
  Country: None (occurrence: None)
  Receive Date: 20110412
  Receipt Date: 20110328
  Transmission Date: 20111010
  Serious: Yes (Hospitalization)
  Sender: FDA-Public Use
  Company Number: 1000018242

PATIENT
  Age: 65 Year
  Sex: Female
  Weight: 51 kg

DRUGS (5)
  1. ACETAMINOPHEN [Suspect]
     Indication: PAIN
     Dosage: UP TO 6 GM DAILY (1 GM,ON REQUEST), ORAL
     Route: 048
     Dates: end: 20101207
  2. PROPOFAN (CAFFEINE, DEXTROPOXYPHENE, PARACETAMOL) [Suspect]
     Indication: MIGRAINE
     Dosage: 6 DF (2 DOSAGE FORMS,3 IN 1 D), ORAL
     Route: 048
     Dates: end: 20101101
  3. KARDEGIC (ACETYLSALICYLATE LYSINE) (ACETYLSALICYLATE LYSINE) [Concomitant]
  4. ESCITALOPRAM [Suspect]
     Indication: DEPRESSION
     Dosage: 10 MG (10 MG,1 IN 1 D), ORAL
     Route: 048
     Dates: start: 20100920, end: 20101205
  5. LOXEN (NICARDIPINE HYDROCHLORIDE) [Concomitant]

REACTIONS (6)
  - INCORRECT DOSE ADMINISTERED [None]
  - HEPATITIS CHOLESTATIC [None]
  - DECREASED APPETITE [None]
  - HEPATIC HAEMATOMA [None]
  - WEIGHT DECREASED [None]
  - VOMITING [None]
